FAERS Safety Report 7434063-6 (Version None)
Quarter: 2011Q2

REPORT INFORMATION
  Report Type: 
  Country: None (occurrence: None)
  Receive Date: 20110425
  Receipt Date: 20110420
  Transmission Date: 20111010
  Serious: Yes (Death, Other)
  Sender: FDA-Public Use
  Company Number: US-ASTELLAS-2011US000986

PATIENT
  Sex: Female

DRUGS (2)
  1. PROGRAF [Suspect]
     Indication: LUNG TRANSPLANT
     Dosage: 0.5 MG, BID
     Route: 048
     Dates: end: 20110302
  2. PREDNISONE [Suspect]
     Indication: PRODUCT USED FOR UNKNOWN INDICATION
     Dosage: UNK
     Route: 065

REACTIONS (7)
  - ARTERIAL DISORDER [None]
  - EMBOLISM ARTERIAL [None]
  - OFF LABEL USE [None]
  - SKIN FRAGILITY [None]
  - MYOCARDIAL INFARCTION [None]
  - HEART TRANSPLANT [None]
  - MULTI-ORGAN DISORDER [None]
